FAERS Safety Report 7037205-X (Version None)
Quarter: 2010Q4

REPORT INFORMATION
  Report Type: 
  Country: None (occurrence: None)
  Receive Date: 20101011
  Receipt Date: 20100929
  Transmission Date: 20110411
  Serious: Yes (Hospitalization, Other)
  Sender: FDA-Public Use
  Company Number: US-ROCHE-674646

PATIENT
  Sex: Female
  Weight: 98.9 kg

DRUGS (4)
  1. ACCUTANE [Suspect]
     Indication: ACNE
     Route: 065
     Dates: start: 20000630, end: 20001201
  2. ALLEGRA [Concomitant]
  3. NASACORT [Concomitant]
  4. ATARAX [Concomitant]

REACTIONS (8)
  - ANAL FISSURE [None]
  - BLOOD TRIGLYCERIDES INCREASED [None]
  - DEPRESSION [None]
  - INFLAMMATORY BOWEL DISEASE [None]
  - INSOMNIA [None]
  - LIP DRY [None]
  - PROCTITIS ULCERATIVE [None]
  - RASH [None]
